FAERS Safety Report 19711664 (Version 1)
Quarter: 2021Q3

REPORT INFORMATION
  Report Type: Spontaneous
  Country: US (occurrence: US)
  Receive Date: 20210817
  Receipt Date: 20210817
  Transmission Date: 20211014
  Serious: No
  Sender: FDA-Public Use
  Company Number: US-TEVA-2021-US-1937551

PATIENT
  Age: 67 Year
  Sex: Female
  Weight: 71.1 kg

DRUGS (16)
  1. METHOTREXATE ZYDUS [Suspect]
     Active Substance: METHOTREXATE
     Route: 065
     Dates: start: 2021
  2. TRAZODONE [Suspect]
     Active Substance: TRAZODONE HYDROCHLORIDE
     Route: 065
  3. MOVANTIK [Suspect]
     Active Substance: NALOXEGOL OXALATE
     Route: 065
  4. ROPINIROLE. [Suspect]
     Active Substance: ROPINIROLE
     Route: 065
     Dates: start: 2021
  5. FETZIMA [Suspect]
     Active Substance: LEVOMILNACIPRAN HYDROCHLORIDE
     Route: 065
  6. LAMICTAL [Suspect]
     Active Substance: LAMOTRIGINE
     Route: 065
  7. BUPRENORPHINE 8 MG/NALOXONE 2 MG [Suspect]
     Active Substance: BUPRENORPHINE\NALOXONE
     Indication: PAIN
     Dosage: BUPRENORPHINE 8 MG AND NALOXONE 2 MG SUBLINGUAL FILM CIII? 30 CT
     Route: 065
     Dates: end: 20210713
  8. OMEPRAZOLE. [Suspect]
     Active Substance: OMEPRAZOLE
     Route: 065
  9. ENBREL [Suspect]
     Active Substance: ETANERCEPT
     Route: 065
  10. ASPIRIN. [Suspect]
     Active Substance: ASPIRIN
     Route: 065
  11. FOLATE [Suspect]
     Active Substance: FOLATE SODIUM
     Route: 065
  12. CETIRIZINE [Suspect]
     Active Substance: CETIRIZINE HYDROCHLORIDE
     Route: 065
  13. COLACE [Suspect]
     Active Substance: DOCUSATE SODIUM
     Route: 065
  14. GENTLE LAXATIVE [Suspect]
     Active Substance: BISACODYL
     Route: 065
  15. LEXAPRO [Suspect]
     Active Substance: ESCITALOPRAM OXALATE
     Route: 065
  16. DOCUSATE [Suspect]
     Active Substance: DOCUSATE
     Dosage: SOFTGELS
     Route: 065

REACTIONS (3)
  - Asthenia [Unknown]
  - Malaise [Unknown]
  - Hyperhidrosis [Unknown]
